FAERS Safety Report 13114490 (Version 1)
Quarter: 2017Q1

REPORT INFORMATION
  Report Type: Spontaneous
  Country: IT (occurrence: IT)
  Receive Date: 20170113
  Receipt Date: 20170113
  Transmission Date: 20170428
  Serious: Yes (Hospitalization)
  Sender: FDA-Public Use
  Company Number: IT-SEPTODONT-201603790

PATIENT
  Age: 54 Year
  Sex: Female

DRUGS (1)
  1. MEPIVACAINE HYDROCHLORIDE. [Suspect]
     Active Substance: MEPIVACAINE HYDROCHLORIDE
     Indication: TOOTH ABSCESS
     Route: 004
     Dates: start: 20161206, end: 20161206

REACTIONS (4)
  - Dyspnoea [Recovering/Resolving]
  - Urticaria [Recovering/Resolving]
  - Hypersensitivity [Recovering/Resolving]
  - Angioedema [Recovering/Resolving]

NARRATIVE: CASE EVENT DATE: 20161206
